FAERS Safety Report 24405759 (Version 1)
Quarter: 2024Q4

REPORT INFORMATION
  Report Type: Spontaneous
  Country: US (occurrence: US)
  Receive Date: 20241007
  Receipt Date: 20241007
  Transmission Date: 20250114
  Serious: Yes (Life-Threatening, Hospitalization, Other)
  Sender: MYLAN
  Company Number: US-MYLANLABS-2024M1088145

PATIENT
  Sex: Female

DRUGS (6)
  1. IMATINIB [Suspect]
     Active Substance: IMATINIB
     Indication: Chronic myeloid leukaemia
     Dosage: UNK
     Route: 065
  2. NOREPINEPHRINE [Suspect]
     Active Substance: NOREPINEPHRINE\NOREPINEPHRINE BITARTRATE
     Indication: Cardiogenic shock
     Dosage: UNK, INTRAVENOUS INFUSION
     Route: 042
  3. BOSUTINIB [Suspect]
     Active Substance: BOSUTINIB
     Indication: Chronic myeloid leukaemia
     Dosage: UNK
     Route: 065
  4. DASATINIB [Suspect]
     Active Substance: DASATINIB
     Indication: Chronic myeloid leukaemia
     Dosage: UNK
     Route: 065
  5. NILOTINIB [Suspect]
     Active Substance: NILOTINIB
     Indication: Chronic myeloid leukaemia
     Dosage: UNK
     Route: 065
  6. DOBUTAMINE [Suspect]
     Active Substance: DOBUTAMINE HYDROCHLORIDE
     Indication: Cardiogenic shock
     Dosage: UNK, INTRAVENOUS INFUSION
     Route: 042

REACTIONS (6)
  - Cardiogenic shock [Recovering/Resolving]
  - Right ventricular failure [Recovering/Resolving]
  - Pulmonary arterial hypertension [Recovering/Resolving]
  - Pleural effusion [Recovering/Resolving]
  - Treatment failure [Unknown]
  - Nephropathy toxic [Recovering/Resolving]
